FAERS Safety Report 10389363 (Version 2)
Quarter: 2014Q3

REPORT INFORMATION
  Report Type: Spontaneous
  Country: US (occurrence: US)
  Receive Date: 20140818
  Receipt Date: 20140822
  Transmission Date: 20150326
  Serious: Yes (Other)
  Sender: FDA-Public Use
  Company Number: US-DRREDDYS-USA/USA/14/0042385

PATIENT
  Age: 15 Year
  Sex: Female

DRUGS (2)
  1. ZENATANE [Suspect]
     Active Substance: ISOTRETINOIN
     Indication: ACNE
     Dosage: IN THE MORNING
     Route: 048
     Dates: start: 201404
  2. ZENATANE [Suspect]
     Active Substance: ISOTRETINOIN
     Dosage: IN THE EVENING
     Route: 048
     Dates: start: 201404

REACTIONS (2)
  - Amnesia [Not Recovered/Not Resolved]
  - Rectal haemorrhage [Recovered/Resolved]

NARRATIVE: CASE EVENT DATE: 20140610
